FAERS Safety Report 7314875-X (Version None)
Quarter: 2011Q1

REPORT INFORMATION
  Report Type: 
  Country: None (occurrence: None)
  Receive Date: 20110225
  Receipt Date: 20100129
  Transmission Date: 20110831
  Serious: No
  Sender: FDA-Public Use
  Company Number: US-MYLANLABS-2010S1000634

PATIENT
  Age: 10 Year
  Sex: Female
  Weight: 72.58 kg

DRUGS (4)
  1. CONCERTA [Concomitant]
     Indication: ATTENTION DEFICIT/HYPERACTIVITY DISORDER
     Route: 048
  2. AMNESTEEM [Suspect]
     Indication: ACNE
     Route: 048
     Dates: start: 20091222
  3. AMNESTEEM [Suspect]
     Route: 048
     Dates: start: 20091222
  4. KARIVA [Concomitant]

REACTIONS (5)
  - LIP DRY [None]
  - DRY SKIN [None]
  - NAUSEA [None]
  - INSOMNIA [None]
  - EPISTAXIS [None]
